FAERS Safety Report 4810647-6 (Version None)
Quarter: 2005Q4

REPORT INFORMATION
  Report Type: 
  Country: None (occurrence: None)
  Receive Date: 20051026
  Receipt Date: 20050919
  Transmission Date: 20060501
  Serious: Yes (Death, Hospitalization)
  Sender: FDA-Public Use
  Company Number: US-MERCK-0509USA02636

PATIENT
  Age: 66 Year
  Sex: Female
  Weight: 73 kg

DRUGS (17)
  1. VIOXX [Suspect]
     Indication: ARTHRITIS
     Route: 048
     Dates: start: 19990702, end: 20030918
  2. ULTRAM [Concomitant]
     Route: 065
  3. DAYPRO [Concomitant]
     Route: 065
  4. KETOPROFEN [Concomitant]
     Route: 065
  5. NAPRELAN [Concomitant]
     Route: 065
  6. NAPROXEN [Concomitant]
     Route: 065
  7. LESCOL [Concomitant]
     Route: 065
  8. LASIX [Concomitant]
     Route: 065
  9. COZAAR [Concomitant]
     Route: 065
  10. DIOVAN [Concomitant]
     Route: 065
  11. TOPROL-XL [Concomitant]
     Route: 065
  12. NORVASC [Concomitant]
     Route: 065
  13. CARDIZEM [Concomitant]
     Route: 065
  14. TIAZAC [Concomitant]
     Route: 065
  15. AMBIEN [Concomitant]
     Route: 065
  16. SYNTHROID [Concomitant]
     Route: 065
  17. ZANTAC [Concomitant]
     Route: 065

REACTIONS (2)
  - CEREBROVASCULAR ACCIDENT [None]
  - PULMONARY EMBOLISM [None]
